FAERS Safety Report 24465904 (Version 1)
Quarter: 2024Q4

REPORT INFORMATION
  Report Type: Report from Study
  Country: US (occurrence: US)
  Receive Date: 20241018
  Receipt Date: 20241018
  Transmission Date: 20250114
  Serious: No
  Sender: ROCHE
  Company Number: US-ROCHE-3521278

PATIENT
  Weight: 63.5 kg

DRUGS (7)
  1. XOLAIR [Suspect]
     Active Substance: OMALIZUMAB
     Indication: Idiopathic urticaria
     Route: 065
  2. KETOTIFEN [Concomitant]
     Active Substance: KETOTIFEN
  3. CLARITIN [Concomitant]
     Active Substance: LORATADINE
  4. CROMOLYN [Concomitant]
     Active Substance: CROMOLYN
  5. ALLEGRA [Concomitant]
     Active Substance: FEXOFENADINE HYDROCHLORIDE
  6. OMEPRAZOLE [Concomitant]
     Active Substance: OMEPRAZOLE
  7. POTASSIUM [Concomitant]
     Active Substance: POTASSIUM

REACTIONS (9)
  - Headache [Unknown]
  - Weight increased [Unknown]
  - Vomiting [Unknown]
  - Night sweats [Unknown]
  - Chills [Unknown]
  - Neuralgia [Unknown]
  - Paraesthesia [Unknown]
  - Pyrexia [Unknown]
  - Urticaria [Unknown]
